FAERS Safety Report 4640383-0 (Version None)
Quarter: 2005Q2

REPORT INFORMATION
  Report Type: 
  Country: None (occurrence: None)
  Receive Date: 20050420
  Receipt Date: 20050408
  Transmission Date: 20051028
  Serious: Yes (Hospitalization)
  Sender: FDA-Public Use
  Company Number: GB-GLAXOSMITHKLINE-B0377982A

PATIENT
  Age: 62 Year
  Sex: Male

DRUGS (2)
  1. NIQUITIN CQ PATCH [Suspect]
     Indication: SMOKING CESSATION THERAPY
     Route: 062
     Dates: end: 20050401
  2. PERINDOPRIL [Concomitant]
     Route: 048

REACTIONS (5)
  - CEREBROVASCULAR ACCIDENT [None]
  - DIZZINESS [None]
  - HYPERHIDROSIS [None]
  - MEDICATION ERROR [None]
  - NAUSEA [None]
